FAERS Safety Report 19087707 (Version 3)
Quarter: 2021Q2

REPORT INFORMATION
  Report Type: Spontaneous
  Country: US (occurrence: US)
  Receive Date: 20210402
  Receipt Date: 20210524
  Transmission Date: 20210717
  Serious: No
  Sender: FDA-Public Use
  Company Number: US-CELGENEUS-USA-20210307586

PATIENT
  Age: 2 Year
  Sex: Male

DRUGS (6)
  1. THALOMID [Suspect]
     Active Substance: THALIDOMIDE
     Indication: OFF LABEL USE
  2. FENOFIBRATE. [Concomitant]
     Active Substance: FENOFIBRATE
     Indication: BRAIN NEOPLASM
     Dosage: 53 MILLIGRAM
     Route: 065
     Dates: start: 20210302, end: 20210413
  3. THALOMID [Suspect]
     Active Substance: THALIDOMIDE
     Indication: MEDULLOBLASTOMA
  4. THALOMID [Suspect]
     Active Substance: THALIDOMIDE
     Indication: BRAIN NEOPLASM MALIGNANT
     Dosage: 40 MILLIGRAM
     Route: 048
     Dates: start: 20210227
  5. CELECOXIB. [Concomitant]
     Active Substance: CELECOXIB
     Indication: BRAIN NEOPLASM
     Dosage: 200 MILLIGRAM
     Route: 065
     Dates: start: 20210302, end: 20210413
  6. ETOPOSIDE. [Concomitant]
     Active Substance: ETOPOSIDE
     Indication: BRAIN NEOPLASM
     Dosage: 20 MILLIGRAM
     Route: 065
     Dates: start: 20210302, end: 20210322

REACTIONS (2)
  - Lethargy [Recovered/Resolved]
  - Fatigue [Recovered/Resolved]

NARRATIVE: CASE EVENT DATE: 20210323
